FAERS Safety Report 22239019 (Version 2)
Quarter: 2023Q2

REPORT INFORMATION
  Report Type: Report from Study
  Country: DE (occurrence: None)
  Receive Date: 20230421
  Receipt Date: 20230503
  Transmission Date: 20230722
  Serious: Yes (Hospitalization)
  Sender: FDA-Public Use
  Company Number: DE-ROCHE-3214143

PATIENT
  Age: 75 Year
  Sex: Female
  Weight: 65.4 kg

DRUGS (61)
  1. INVESTIGATIONAL PRODUCT [Suspect]
     Active Substance: INVESTIGATIONAL PRODUCT
     Indication: Acute myeloid leukaemia refractory
     Dosage: DOSE LAST STUDY DRUG ADMIN PRIOR ADVERSE EVENT 18 MG?ON 27/OCT/2022, START DATE OF MOST RECENT DOSE
     Route: 042
     Dates: start: 20221007
  2. TOCILIZUMAB [Suspect]
     Active Substance: TOCILIZUMAB
     Indication: Acute myeloid leukaemia refractory
     Dosage: ON 23/OCT/2022 IS THE START DATE OF MOST RECENT DOSE OF STUDY DRUG PRIOR TO AE IS 520 MG.
     Route: 042
     Dates: start: 20221023
  3. CLINDAMYCIN [Concomitant]
     Active Substance: CLINDAMYCIN
     Indication: Soft tissue infection
     Route: 042
     Dates: start: 20221010, end: 20221018
  4. CLINDAMYCIN [Concomitant]
     Active Substance: CLINDAMYCIN
     Indication: Device related infection
     Route: 042
     Dates: start: 20221012, end: 20221018
  5. MEROPENEM [Concomitant]
     Active Substance: MEROPENEM
     Indication: Soft tissue infection
     Route: 042
     Dates: start: 20221011, end: 20221018
  6. MEROPENEM [Concomitant]
     Active Substance: MEROPENEM
     Indication: Device related infection
     Route: 042
     Dates: start: 20221012, end: 20221017
  7. MEROPENEM [Concomitant]
     Active Substance: MEROPENEM
     Indication: Febrile neutropenia
     Route: 042
     Dates: start: 20221023, end: 20221028
  8. MEROPENEM [Concomitant]
     Active Substance: MEROPENEM
     Route: 042
     Dates: start: 20221029, end: 20221029
  9. ACETAMINOPHEN [Concomitant]
     Active Substance: ACETAMINOPHEN
     Indication: Soft tissue infection
     Route: 042
     Dates: start: 20221010, end: 20221011
  10. ACETAMINOPHEN [Concomitant]
     Active Substance: ACETAMINOPHEN
     Indication: Neck pain
     Route: 042
     Dates: start: 20221011, end: 20221012
  11. ACETAMINOPHEN [Concomitant]
     Active Substance: ACETAMINOPHEN
     Route: 048
     Dates: start: 20221014, end: 20221014
  12. ACETAMINOPHEN [Concomitant]
     Active Substance: ACETAMINOPHEN
     Route: 042
     Dates: start: 20221007, end: 20221007
  13. ACETAMINOPHEN [Concomitant]
     Active Substance: ACETAMINOPHEN
     Route: 042
     Dates: start: 20221021, end: 20221021
  14. ELECTROLYTES NOS [Concomitant]
     Active Substance: ELECTROLYTES NOS
     Indication: Soft tissue infection
     Dosage: DOSE 1 AMPULE
     Route: 055
     Dates: start: 20221010, end: 20221017
  15. PIRITRAMID [Concomitant]
     Indication: Neck pain
     Route: 042
     Dates: start: 20221014, end: 20221014
  16. METAMIZOLE [Concomitant]
     Active Substance: METAMIZOLE
     Indication: Neck pain
     Route: 048
     Dates: start: 20221016, end: 20221017
  17. METAMIZOLE [Concomitant]
     Active Substance: METAMIZOLE
     Indication: Vascular access site pain
     Dosage: 40 OTHER
     Route: 048
     Dates: start: 20221006, end: 20221006
  18. DEXAMETHASONE [Concomitant]
     Active Substance: DEXAMETHASONE
     Indication: Neck pain
     Route: 048
     Dates: start: 20221019, end: 20221019
  19. DEXAMETHASONE [Concomitant]
     Active Substance: DEXAMETHASONE
     Route: 042
     Dates: start: 20221014, end: 20221014
  20. DEXAMETHASONE [Concomitant]
     Active Substance: DEXAMETHASONE
     Route: 042
     Dates: start: 20221007, end: 20221007
  21. DEXAMETHASONE [Concomitant]
     Active Substance: DEXAMETHASONE
     Route: 042
     Dates: start: 20221021, end: 20221021
  22. ESOMEPRAZOLE [Concomitant]
     Active Substance: ESOMEPRAZOLE
     Route: 048
     Dates: start: 20221007
  23. CIPROFLOXACIN [Concomitant]
     Active Substance: CIPROFLOXACIN
     Indication: Cystitis
     Route: 048
     Dates: start: 20221001, end: 20221005
  24. RINGERS SOLUTION [Concomitant]
     Active Substance: CALCIUM CHLORIDE\POTASSIUM CHLORIDE\SODIUM CHLORIDE
     Route: 042
     Dates: start: 20221011, end: 20221017
  25. RINGERS SOLUTION [Concomitant]
     Active Substance: CALCIUM CHLORIDE\POTASSIUM CHLORIDE\SODIUM CHLORIDE
     Route: 042
     Dates: start: 20221014, end: 20221014
  26. POSACONAZOLE [Concomitant]
     Active Substance: POSACONAZOLE
     Route: 048
     Dates: start: 20221011
  27. POSACONAZOLE [Concomitant]
     Active Substance: POSACONAZOLE
     Route: 048
     Dates: start: 20221021, end: 20221208
  28. VANCOMYCIN [Concomitant]
     Active Substance: VANCOMYCIN
     Indication: Device related infection
     Route: 042
     Dates: start: 20221011, end: 20221011
  29. VANCOMYCIN [Concomitant]
     Active Substance: VANCOMYCIN
     Route: 042
     Dates: start: 20221012, end: 20221012
  30. VANCOMYCIN [Concomitant]
     Active Substance: VANCOMYCIN
     Dosage: DOSE OF 1250 MG
     Route: 042
     Dates: start: 20221013, end: 20221013
  31. VANCOMYCIN [Concomitant]
     Active Substance: VANCOMYCIN
     Route: 042
     Dates: start: 20221014, end: 20221016
  32. VANCOMYCIN [Concomitant]
     Active Substance: VANCOMYCIN
     Dosage: DOSE 1 G
     Route: 042
     Dates: start: 20221017, end: 20221018
  33. ENOXAPARIN [Concomitant]
     Active Substance: ENOXAPARIN
     Route: 058
     Dates: start: 20221010, end: 20221011
  34. VENETOCLAX [Concomitant]
     Active Substance: VENETOCLAX
     Route: 065
     Dates: start: 20220712
  35. LIDOCAINE [Concomitant]
     Active Substance: LIDOCAINE
     Indication: Aphthous ulcer
     Route: 048
     Dates: start: 20221027, end: 202211
  36. TOCILIZUMAB [Concomitant]
     Active Substance: TOCILIZUMAB
     Indication: Cytokine release syndrome
     Route: 042
     Dates: start: 20221023, end: 20221023
  37. DIMETHINDENE MALEATE [Concomitant]
     Active Substance: DIMETHINDENE MALEATE
     Dosage: 1 AMPULE
     Route: 042
     Dates: start: 20221006, end: 20221007
  38. DIMETHINDENE MALEATE [Concomitant]
     Active Substance: DIMETHINDENE MALEATE
     Dosage: 1 AMPULE
     Route: 042
     Dates: start: 20221010, end: 20221010
  39. POTASSIUM [Concomitant]
     Active Substance: POTASSIUM
     Dosage: 2 ML/H
     Route: 042
     Dates: start: 20221009, end: 20221010
  40. POTASSIUM [Concomitant]
     Active Substance: POTASSIUM
     Dosage: 4 ML/H
     Route: 042
     Dates: start: 20221009, end: 20221009
  41. POTASSIUM [Concomitant]
     Active Substance: POTASSIUM
     Route: 048
     Dates: start: 20221016, end: 20221017
  42. POTASSIUM [Concomitant]
     Active Substance: POTASSIUM
     Route: 048
     Dates: start: 20221022, end: 20221022
  43. POTASSIUM [Concomitant]
     Active Substance: POTASSIUM
     Route: 048
     Dates: start: 20221024, end: 20221024
  44. JONOSTERIL [Concomitant]
     Dosage: 20 ML/H
     Route: 042
     Dates: start: 20221010, end: 20221010
  45. JONOSTERIL [Concomitant]
     Dosage: 80 ML/H
     Route: 042
     Dates: start: 20221008, end: 20221010
  46. JONOSTERIL [Concomitant]
     Dosage: 150 ML/H
     Route: 042
     Dates: start: 20221006, end: 20221008
  47. JONOSTERIL [Concomitant]
     Route: 042
     Dates: start: 20221010, end: 20221010
  48. JONOSTERIL [Concomitant]
     Dosage: 150 ML/H
     Route: 042
     Dates: start: 20221021, end: 20221021
  49. JONOSTERIL [Concomitant]
     Dosage: 60 ML/H
     Route: 042
     Dates: start: 20221021, end: 20221021
  50. ACTRAPID [Concomitant]
     Active Substance: INSULIN HUMAN
     Indication: Hyperglycaemia
     Route: 058
     Dates: start: 20221007, end: 20221007
  51. ACTRAPID [Concomitant]
     Active Substance: INSULIN HUMAN
     Route: 058
     Dates: start: 20221007, end: 20221007
  52. DIMETHINDENE MALEATE [Concomitant]
     Active Substance: DIMETHINDENE MALEATE
     Dosage: 1 AMPULE
     Route: 042
     Dates: start: 20221007, end: 20221007
  53. DIMETHINDENE MALEATE [Concomitant]
     Active Substance: DIMETHINDENE MALEATE
     Dosage: 1 AMPULE
     Route: 042
     Dates: start: 20221021, end: 20221021
  54. FUROSEMIDE [Concomitant]
     Active Substance: FUROSEMIDE
     Indication: Oedema peripheral
     Route: 048
     Dates: start: 20221007, end: 20221007
  55. FUROSEMIDE [Concomitant]
     Active Substance: FUROSEMIDE
     Route: 048
     Dates: start: 20221016, end: 20221016
  56. FUROSEMIDE [Concomitant]
     Active Substance: FUROSEMIDE
     Route: 042
     Dates: start: 20221017, end: 20221017
  57. MOVICOL [Concomitant]
     Active Substance: POLYETHYLENE GLYCOL 3350\POTASSIUM CHLORIDE\SODIUM BICARBONATE\SODIUM CHLORIDE
     Dosage: 1 BAG
     Route: 048
     Dates: start: 20221008, end: 20221008
  58. SULFAMETHOXAZOLE\TRIMETHOPRIM [Concomitant]
     Active Substance: SULFAMETHOXAZOLE\TRIMETHOPRIM
     Indication: Cytokine release syndrome
     Route: 048
     Dates: start: 20221024, end: 20221028
  59. HEPARIN [Concomitant]
     Active Substance: HEPARIN SODIUM
     Dosage: 250 OTHER
     Route: 042
     Dates: start: 20221008, end: 20221010
  60. HEPARIN [Concomitant]
     Active Substance: HEPARIN SODIUM
     Dosage: 250 OTHER
     Route: 042
     Dates: start: 20221021, end: 20221021
  61. ACYCLOVIR [Concomitant]
     Active Substance: ACYCLOVIR
     Route: 048
     Dates: start: 20221021, end: 20221208

REACTIONS (1)
  - General physical health deterioration [Not Recovered/Not Resolved]

NARRATIVE: CASE EVENT DATE: 20221103
